FAERS Safety Report 8160163-1 (Version None)
Quarter: 2012Q1

REPORT INFORMATION
  Report Type: 
  Country: None (occurrence: None)
  Receive Date: 20120103
  Receipt Date: 20110916
  Transmission Date: 20120608
  Serious: No
  Sender: FDA-Public Use
  Company Number: AE-2011-001586

PATIENT
  Age: 52 Year
  Sex: Female

DRUGS (5)
  1. RIBAPAK (RIBAVIRIN) [Concomitant]
  2. BLOOD PRESSURE MEDICINE (ANTIHYPERTENSIVES) [Concomitant]
  3. INCIVEK [Suspect]
     Dosage: 2250 MG (750 MG, 3 IN 1 D), ORAL
     Route: 048
     Dates: start: 20110818
  4. THYROID MEDICINE (THYROID THERAPY) [Concomitant]
  5. PEGASYS [Concomitant]

REACTIONS (1)
  - DIZZINESS [None]
